FAERS Safety Report 9849487 (Version 1)
Quarter: 2014Q1

REPORT INFORMATION
  Report Type: Report from Study
  Country: US (occurrence: US)
  Receive Date: 20140128
  Receipt Date: 20140128
  Transmission Date: 20141002
  Serious: Yes (Other)
  Sender: FDA-Public Use
  Company Number: US-PURDUE-USA-2014-0110632

PATIENT
  Age: 59 Year
  Sex: Female

DRUGS (2)
  1. OXY CR TAB [Suspect]
     Indication: BREAST CANCER METASTATIC
     Dosage: 20 MG, TID
     Route: 048
     Dates: start: 201309, end: 20131108
  2. OXY CR TAB [Suspect]
     Dosage: 80 MG, TID
     Route: 048
     Dates: start: 20131108

REACTIONS (2)
  - Lumbar vertebral fracture [Unknown]
  - Pain [Unknown]
